FAERS Safety Report 4917070-4 (Version None)
Quarter: 2006Q1

REPORT INFORMATION
  Report Type: 
  Country: None (occurrence: None)
  Receive Date: 20060221
  Receipt Date: 20060209
  Transmission Date: 20060701
  Serious: Yes (Other)
  Sender: FDA-Public Use
  Company Number: PHEH2006US01914

PATIENT
  Age: 42 Year
  Sex: Female
  Weight: 85.714 kg

DRUGS (5)
  1. SEROQUEL [Concomitant]
     Dates: start: 20051001
  2. WELLBUTRIN [Concomitant]
     Dosage: 150 MG, UNK
     Dates: start: 20051001
  3. TOPAMAX [Concomitant]
  4. LORAZEPAM [Concomitant]
     Indication: PANIC ATTACK
  5. ZELNORM [Suspect]
     Indication: IRRITABLE BOWEL SYNDROME
     Dosage: 6 MG, BID
     Route: 048
     Dates: start: 20051005, end: 20060209

REACTIONS (12)
  - ABDOMINAL PAIN [None]
  - COLITIS ULCERATIVE [None]
  - CONDITION AGGRAVATED [None]
  - CONSTIPATION [None]
  - DIARRHOEA [None]
  - FATIGUE [None]
  - HAEMORRHOIDS [None]
  - HERNIA [None]
  - RECTAL HAEMORRHAGE [None]
  - SURGERY [None]
  - VISUAL DISTURBANCE [None]
  - WEIGHT DECREASED [None]
